FAERS Safety Report 12279701 (Version 2)
Quarter: 2016Q2

REPORT INFORMATION
  Report Type: Spontaneous
  Country: CN (occurrence: CN)
  Receive Date: 20160418
  Receipt Date: 20160421
  Transmission Date: 20160815
  Serious: Yes (Life-Threatening, Other)
  Sender: FDA-Public Use
  Company Number: CN-009507513-1604CHN011366

PATIENT
  Age: 40 Year
  Sex: Male
  Weight: 70 kg

DRUGS (1)
  1. PEGINTRON [Suspect]
     Active Substance: PEGINTERFERON ALFA-2B
     Indication: CHRONIC HEPATITIS B
     Dosage: 80 MCG, WEEKLY
     Route: 058
     Dates: start: 20151122, end: 20151222

REACTIONS (3)
  - Affect lability [Recovering/Resolving]
  - Suicidal ideation [Recovering/Resolving]
  - Tension [Recovering/Resolving]

NARRATIVE: CASE EVENT DATE: 20151205
